FAERS Safety Report 8183222-6 (Version None)
Quarter: 2012Q1

REPORT INFORMATION
  Report Type: 
  Country: None (occurrence: None)
  Receive Date: 20120227
  Receipt Date: 20110809
  Transmission Date: 20120608
  Serious: Yes (Other)
  Sender: FDA-Public Use
  Company Number: 1000022816

PATIENT
  Age: 48 Year
  Sex: Male
  Weight: 140 kg

DRUGS (6)
  1. BYSTOLIC [Suspect]
     Indication: HYPERTENSION
     Dosage: 20 MG (20 MG)
     Dates: start: 20110401, end: 20110601
  2. PROTONIX [Suspect]
     Indication: HERNIA
     Dosage: 40 MG (40 MG)
     Dates: start: 20110401, end: 20110101
  3. TRIBENZOR (TRIBENZOR) (TRIBENZOR) [Concomitant]
  4. LIPITOR [Suspect]
  5. CADUET [Suspect]
     Indication: HYPERTENSION
     Dosage: 10 MG (10 MG)
     Dates: start: 20110401, end: 20110601
  6. NORVASC [Suspect]

REACTIONS (2)
  - HYPERTENSION [None]
  - CHEST PAIN [None]
